FAERS Safety Report 7838354-6 (Version None)
Quarter: 2011Q4

REPORT INFORMATION
  Report Type: 
  Country: None (occurrence: None)
  Receive Date: 20111024
  Receipt Date: 20111019
  Transmission Date: 20120403
  Serious: Yes (Other)
  Sender: FDA-Public Use
  Company Number: US-ALLERGAN-1113794US

PATIENT
  Sex: Female

DRUGS (2)
  1. TRACLEER [Interacting]
     Indication: PULMONARY HYPERTENSION
     Route: 048
  2. RESTASIS [Suspect]
     Indication: DRY EYE
     Dosage: UNK

REACTIONS (2)
  - DRUG INTERACTION [None]
  - HEPATIC ENZYME INCREASED [None]
